FAERS Safety Report 23341080 (Version 1)
Quarter: 2023Q4

REPORT INFORMATION
  Report Type: Spontaneous
  Country: CN (occurrence: CN)
  Receive Date: 20231227
  Receipt Date: 20231227
  Transmission Date: 20240110
  Serious: Yes (Other)
  Sender: FDA-Public Use
  Company Number: None

PATIENT
  Age: 54 Year
  Sex: Female
  Weight: 56 kg

DRUGS (3)
  1. CYCLOPHOSPHAMIDE [Suspect]
     Active Substance: CYCLOPHOSPHAMIDE
     Indication: Neoplasm malignant
     Dosage: 1 G, ONE TIME IN ONE DAY(ST), DILUTED WITH 0.9% OF 100 ML SODIUM CHLORIDE, AT 10:50 HR
     Route: 041
     Dates: start: 20231122, end: 20231122
  2. CYCLOPHOSPHAMIDE [Suspect]
     Active Substance: CYCLOPHOSPHAMIDE
     Indication: Chemotherapy
  3. SODIUM CHLORIDE [Suspect]
     Active Substance: SODIUM CHLORIDE
     Indication: Medication dilution
     Dosage: 100 ML, ONE TIME IN ONE DAY(ST), STRENGTH: 0.9%, USED TO DILUTE 1 G OF CYCLOPHOSPHAMIDE, AT 10:50 HR
     Route: 041
     Dates: start: 20231122, end: 20231122

REACTIONS (2)
  - Myelosuppression [Recovering/Resolving]
  - Full blood count decreased [Recovering/Resolving]

NARRATIVE: CASE EVENT DATE: 20231214
